FAERS Safety Report 6467693-9 (Version None)
Quarter: 2009Q4

REPORT INFORMATION
  Report Type: 
  Country: None (occurrence: None)
  Receive Date: 20091127
  Receipt Date: 20091112
  Transmission Date: 20100525
  Serious: Yes (Hospitalization)
  Sender: FDA-Public Use
  Company Number: 2009001475

PATIENT
  Age: 59 Year
  Sex: Female

DRUGS (4)
  1. ERLOTINIB HYDROCHLORIDE [Suspect]
     Indication: OVARIAN CANCER
     Dosage: 100 MG,QD, ORAL
     Route: 048
     Dates: start: 20070328
  2. METOPROLOL (METOPROLOL) [Concomitant]
  3. NIFEDIPINE [Concomitant]
  4. MINOCYCLINE HCL [Concomitant]

REACTIONS (1)
  - PTERYGIUM [None]
